FAERS Safety Report 4303687-7 (Version None)
Quarter: 2004Q1

REPORT INFORMATION
  Report Type: 
  Country: None (occurrence: None)
  Receive Date: 20040223
  Receipt Date: 20040209
  Transmission Date: 20041129
  Serious: Yes (Hospitalization)
  Sender: FDA-Public Use
  Company Number: 2004-BP-01168BR

PATIENT

DRUGS (2)
  1. SPIRIVA [Suspect]
     Dosage: NR (18 MCG), IH
     Route: 025
  2. ANTIHYPERTENSIVE (NON-SPECIFIED) [Concomitant]

REACTIONS (1)
  - CARDIAC DISORDER [None]
